FAERS Safety Report 15244951 (Version 1)
Quarter: 2018Q4

REPORT INFORMATION
  Report Type: Spontaneous
  Country: FR (occurrence: FR)
  Receive Date: 20180806
  Receipt Date: 20180806
  Transmission Date: 20190204
  Serious: Yes (Hospitalization)
  Sender: FDA-Public Use
  Company Number: FR-MYLANLABS-2018M1057731

PATIENT
  Age: 80 Year
  Sex: Female
  Weight: 60 kg

DRUGS (10)
  1. MELPHALAN. [Suspect]
     Active Substance: MELPHALAN
     Indication: CHEMOTHERAPY
     Dosage: 9 MG/M?, UNK, (16 MG) FROM DAY 1 TO 4
     Dates: start: 20140401, end: 20140404
  2. BORTEZOMIB. [Interacting]
     Active Substance: BORTEZOMIB
     Indication: CHEMOTHERAPY
     Dosage: 1.3 MG/M?, UNK,  (DAY 1, 4, 8, 11, 22, 25, 29, 32)
     Route: 058
  3. PREDNISONE. [Concomitant]
     Active Substance: PREDNISONE
     Indication: PRODUCT USED FOR UNKNOWN INDICATION
     Dosage: 60 MG/M2, UNK
  4. ATORVASTATIN [Concomitant]
     Active Substance: ATORVASTATIN
     Indication: HYPERCHOLESTEROLAEMIA
     Dosage: UNK
  5. VALACICLOVIR [Concomitant]
     Active Substance: VALACYCLOVIR HYDROCHLORIDE
     Indication: PROPHYLAXIS
     Dosage: 500 MG, QD
  6. OMEPRAZOLE. [Concomitant]
     Active Substance: OMEPRAZOLE
     Indication: PROPHYLAXIS
     Dosage: 20 MG, QD
  7. SULPHAMETHOXAZOLE/TRIMETHOPRIM [Interacting]
     Active Substance: SULFAMETHOXAZOLE\TRIMETHOPRIM
     Indication: PROPHYLAXIS
     Dosage: UNK
  8. CALCIUM FOLINATE [Concomitant]
     Active Substance: LEUCOVORIN CALCIUM
     Indication: PROPHYLAXIS
     Dosage: 25 MG, QW
  9. SOTALOL. [Concomitant]
     Active Substance: SOTALOL
     Indication: HYPERTENSION
     Dosage: UNK
  10. CANDESARTAN. [Concomitant]
     Active Substance: CANDESARTAN
     Indication: HYPERTENSION
     Dosage: UNK

REACTIONS (4)
  - Pancytopenia [Recovered/Resolved]
  - Drug interaction [Recovered/Resolved]
  - Sepsis [Recovered/Resolved]
  - Acute kidney injury [Recovered/Resolved]

NARRATIVE: CASE EVENT DATE: 20140412
